FAERS Safety Report 20536643 (Version 1)
Quarter: 2022Q1

REPORT INFORMATION
  Report Type: Report from Study
  Country: CN (occurrence: CN)
  Receive Date: 20220302
  Receipt Date: 20220302
  Transmission Date: 20220423
  Serious: Yes (Other)
  Sender: FDA-Public Use
  Company Number: CN-JNJFOC-20211040357

PATIENT

DRUGS (4)
  1. RISPERDAL [Suspect]
     Active Substance: RISPERIDONE
     Indication: Negative symptoms in schizophrenia
     Route: 048
  2. RISPERDAL [Suspect]
     Active Substance: RISPERIDONE
     Dosage: DOSE WAS ADJUSTED TO 4-6MG/D WITHIN 2 WEEKS ACCORDING TO THE CONDITION AND PATIENTS TOLERANCE
     Route: 048
  3. SERTRALINE [Suspect]
     Active Substance: SERTRALINE HYDROCHLORIDE
     Indication: Negative symptoms in schizophrenia
     Route: 065
  4. SERTRALINE [Suspect]
     Active Substance: SERTRALINE HYDROCHLORIDE
     Dosage: DOSE WAS ADJUSTED TO 100MG/D AFTER HALF A MONTH OF TREATMENT
     Route: 065

REACTIONS (9)
  - Liver injury [Unknown]
  - Weight increased [Unknown]
  - Tremor [Unknown]
  - Nausea [Unknown]
  - Vomiting [Unknown]
  - Akathisia [Unknown]
  - Electrocardiogram abnormal [Unknown]
  - Inappropriate schedule of product administration [Unknown]
  - Off label use [Unknown]
